FAERS Safety Report 5088053-1 (Version None)
Quarter: 2006Q3

REPORT INFORMATION
  Report Type: 
  Country: None (occurrence: None)
  Receive Date: 20060821
  Receipt Date: 20060801
  Transmission Date: 20061208
  Serious: Yes (Hospitalization)
  Sender: FDA-Public Use
  Company Number: 2006062878

PATIENT
  Age: 75 Year
  Sex: Male

DRUGS (9)
  1. ZIPRASIDONE HCL [Suspect]
     Dosage: 20 MG (20 MG, 1 IN 1 D), ORAL
     Route: 048
     Dates: start: 20021115, end: 20021101
  2. ZOLOFT [Concomitant]
  3. ARICEPT [Concomitant]
  4. TOPROL XL (METORPOLOL SUCCINATE) [Concomitant]
  5. EFEXOR XR (VENLAFAXINE) [Concomitant]
  6. PLAVIX [Concomitant]
  7. DIGOXIN [Concomitant]
  8. ZOCOR [Concomitant]
  9. ASPIRIN [Concomitant]

REACTIONS (5)
  - CARDIOVASCULAR DISORDER [None]
  - DYSKINESIA [None]
  - EXTRAPYRAMIDAL DISORDER [None]
  - MUSCLE TWITCHING [None]
  - TREMOR [None]
